FAERS Safety Report 20153123 (Version 4)
Quarter: 2022Q2

REPORT INFORMATION
  Report Type: Spontaneous
  Country: US (occurrence: US)
  Receive Date: 20211206
  Receipt Date: 20220606
  Transmission Date: 20220721
  Serious: No
  Sender: FDA-Public Use
  Company Number: US-PFIZER INC-202101098504

PATIENT
  Age: 64 Year
  Sex: Female
  Weight: 86.168 kg

DRUGS (1)
  1. ESTRING [Suspect]
     Active Substance: ESTRADIOL
     Indication: Vulvovaginal pain
     Dosage: 2 MG EVERY 3 MONTHS (INSERT 1 RING VAGINALLY EVERY 3 MONTHS. FOLLOW PACKAGE DIRECTIONS)
     Route: 067
     Dates: start: 20210521

REACTIONS (3)
  - Migraine [Unknown]
  - Drug ineffective [Unknown]
  - Pain [Unknown]

NARRATIVE: CASE EVENT DATE: 20210521
